FAERS Safety Report 6736454-5 (Version None)
Quarter: 2010Q2

REPORT INFORMATION
  Report Type: 
  Country: None (occurrence: None)
  Receive Date: 20100521
  Receipt Date: 20100512
  Transmission Date: 20101027
  Serious: Yes (Other)
  Sender: FDA-Public Use
  Company Number: US-ABBOTT-10P-163-0644329-00

PATIENT
  Sex: Male
  Weight: 77.18 kg

DRUGS (3)
  1. DEPAKOTE ER [Suspect]
     Indication: BIPOLAR DISORDER
     Dates: start: 19960101, end: 20100501
  2. EFFEXOR [Concomitant]
     Indication: BIPOLAR DISORDER
  3. DIVALPROEX SODIUM [Concomitant]
     Indication: BIPOLAR DISORDER
     Dates: start: 20100501

REACTIONS (3)
  - HAEMATURIA [None]
  - INTERVERTEBRAL DISC PROTRUSION [None]
  - PNEUMONIA [None]
